FAERS Safety Report 10065138 (Version 3)
Quarter: 2014Q2

REPORT INFORMATION
  Report Type: Spontaneous
  Country: US (occurrence: US)
  Receive Date: 20140408
  Receipt Date: 20140515
  Transmission Date: 20141212
  Serious: No
  Sender: FDA-Public Use
  Company Number: US-BAYER-2014-050968

PATIENT
  Age: 13 Year
  Sex: Female

DRUGS (1)
  1. AVELOX [Suspect]
     Indication: ACNE

REACTIONS (2)
  - Off label use [None]
  - Off label use [None]
